FAERS Safety Report 23157116 (Version 1)
Quarter: 2023Q4

REPORT INFORMATION
  Report Type: Report from Study
  Country: NL (occurrence: NL)
  Receive Date: 20231108
  Receipt Date: 20231108
  Transmission Date: 20240109
  Serious: Yes (Hospitalization)
  Sender: FDA-Public Use
  Company Number: NL-ABBVIE-5485451

PATIENT
  Sex: Male
  Weight: 65 kg

DRUGS (8)
  1. CARBIDOPA\LEVODOPA [Suspect]
     Active Substance: CARBIDOPA\LEVODOPA
     Indication: Parkinson^s disease
     Route: 050
     Dates: start: 20200831
  2. CARBIDOPA\LEVODOPA [Suspect]
     Active Substance: CARBIDOPA\LEVODOPA
     Dosage: CD: 5.0ML/H; ED: 2.0ML; ND: 6.3ML; CND: 2.0ML/H; END: 2.3ML?REMAINS AT 24 HOURS
     Route: 050
     Dates: start: 20230719
  3. CARBIDOPA\LEVODOPA [Suspect]
     Active Substance: CARBIDOPA\LEVODOPA
     Dosage: CD: 5.0ML/H; ED: 2.0ML ?REMAINS AT 24 HOURS
     Route: 050
     Dates: start: 20230313, end: 20230719
  4. CARBIDOPA\LEVODOPA [Suspect]
     Active Substance: CARBIDOPA\LEVODOPA
     Dosage: ND: 6.3ML; CND: 2.0ML/H; END: 2.3ML ?REMAINS AT 16 HOURS?FIRST ADMIN DATE 2023   LAST ADMIN DATE ...
     Route: 050
  5. BENSERAZIDE HYDROCHLORIDE\LEVODOPA [Concomitant]
     Active Substance: BENSERAZIDE HYDROCHLORIDE\LEVODOPA
     Indication: Parkinson^s disease
     Dosage: TIME INTERVAL: 0.16666667 DAYS: FORM STRENGTH: 125 MILLIGRAM
     Dates: start: 20180419
  6. RIVASTIGMINE [Concomitant]
     Active Substance: RIVASTIGMINE
     Indication: Memory impairment
  7. TAMSULOSIN [Concomitant]
     Active Substance: TAMSULOSIN
     Indication: Muscle relaxant therapy
     Dates: start: 20160701
  8. BENSERAZIDE\LEVODOPA [Concomitant]
     Active Substance: BENSERAZIDE\LEVODOPA
     Indication: Product used for unknown indication
     Dosage: 100/25, 2 PIECES
     Dates: start: 20200901

REACTIONS (1)
  - Cerebral haemorrhage [Recovered/Resolved]

NARRATIVE: CASE EVENT DATE: 20230101
